FAERS Safety Report 15966491 (Version 1)
Quarter: 2019Q1

REPORT INFORMATION
  Report Type: Spontaneous
  Country: US (occurrence: US)
  Receive Date: 20190215
  Receipt Date: 20190215
  Transmission Date: 20190418
  Serious: Yes (Other)
  Sender: FDA-Public Use
  Company Number: US-TEVA-2019-US-1012492

PATIENT
  Age: 68 Year
  Sex: Female
  Weight: 52.15 kg

DRUGS (6)
  1. MUCUS ER [Suspect]
     Active Substance: GUAIFENESIN
     Indication: UPPER RESPIRATORY TRACT CONGESTION
     Dosage: 1200 MILLIGRAM DAILY;
     Route: 048
     Dates: start: 201901, end: 201901
  2. LASIX [Concomitant]
     Active Substance: FUROSEMIDE
  3. BREO ELLIPTA [Concomitant]
     Active Substance: FLUTICASONE FUROATE\VILANTEROL TRIFENATATE
  4. MUCUS ER [Suspect]
     Active Substance: GUAIFENESIN
     Dosage: 1200 MG CUT IN 1/2
     Route: 048
     Dates: start: 20190205, end: 20190205
  5. LIPITOR [Concomitant]
     Active Substance: ATORVASTATIN CALCIUM
  6. INCRUSE ELLIPTA [Concomitant]
     Active Substance: UMECLIDINIUM BROMIDE

REACTIONS (3)
  - Choking [Recovered/Resolved]
  - Foreign body in respiratory tract [Recovered/Resolved]
  - Wrong technique in product usage process [Unknown]

NARRATIVE: CASE EVENT DATE: 201901
